FAERS Safety Report 7502463-1 (Version None)
Quarter: 2011Q2

REPORT INFORMATION
  Report Type: 
  Country: None (occurrence: None)
  Receive Date: 20110525
  Receipt Date: 20110513
  Transmission Date: 20111010
  Serious: Yes (Hospitalization)
  Sender: FDA-Public Use
  Company Number: US-JNJFOC-20100701556

PATIENT
  Sex: Male
  Weight: 74.5 kg

DRUGS (8)
  1. ASPIRIN [Concomitant]
     Indication: ILL-DEFINED DISORDER
     Route: 065
  2. ALL OTHER THERAPEUTIC PRODUCTS [Concomitant]
     Route: 065
  3. CISAPRIDE [Suspect]
     Indication: GASTROOESOPHAGEAL REFLUX DISEASE
     Route: 048
     Dates: start: 20100524
  4. ZANTAC 150 [Concomitant]
     Indication: GASTROOESOPHAGEAL REFLUX DISEASE
     Route: 065
  5. PLAVIX [Concomitant]
     Indication: ILL-DEFINED DISORDER
     Route: 065
  6. CISAPRIDE [Suspect]
     Route: 048
     Dates: end: 20100522
  7. CISAPRIDE [Suspect]
     Route: 048
     Dates: end: 20100522
  8. CISAPRIDE [Suspect]
     Indication: GASTROINTESTINAL MOTILITY DISORDER
     Route: 048
     Dates: start: 20100524

REACTIONS (2)
  - HYPERTHYROIDISM [None]
  - ATRIAL FIBRILLATION [None]
